FAERS Safety Report 6869179-6 (Version None)
Quarter: 2010Q3

REPORT INFORMATION
  Report Type: 
  Country: None (occurrence: None)
  Receive Date: 20100722
  Receipt Date: 20100714
  Transmission Date: 20110219
  Serious: Yes (Death, Hospitalization, Other)
  Sender: FDA-Public Use
  Company Number: US-AMGEN-QUU424578

PATIENT
  Sex: Male

DRUGS (1)
  1. ENBREL [Suspect]
     Indication: RHEUMATOID ARTHRITIS
     Route: 058
     Dates: start: 20030101

REACTIONS (9)
  - ARTHRITIS [None]
  - CELLULITIS STAPHYLOCOCCAL [None]
  - CONCUSSION [None]
  - FALL [None]
  - NECROTISING FASCIITIS [None]
  - PNEUMOTHORAX [None]
  - RENAL FAILURE ACUTE [None]
  - RIB FRACTURE [None]
  - THERAPEUTIC RESPONSE DECREASED [None]
